FAERS Safety Report 7307306-7 (Version None)
Quarter: 2011Q1

REPORT INFORMATION
  Report Type: 
  Country: None (occurrence: None)
  Receive Date: 20110223
  Receipt Date: 20110215
  Transmission Date: 20110831
  Serious: Yes (Other)
  Sender: FDA-Public Use
  Company Number: GB-ASTELLAS-2011EU000801

PATIENT
  Age: 6 Year
  Sex: Male
  Weight: 18.2 kg

DRUGS (14)
  1. ASPIRIN [Concomitant]
     Dosage: UNK
     Route: 065
  2. TACROLIMUS [Suspect]
     Indication: RENAL TRANSPLANT
     Dosage: UNK
     Route: 065
  3. AZATHIOPRINE [Concomitant]
     Dosage: UNK
     Route: 065
  4. SEPTRIN [Concomitant]
     Dosage: UNK
     Route: 065
  5. SYTRON [Concomitant]
     Dosage: UNK
     Route: 065
  6. PIPERACILLIN AND TAZOBACTAM [Interacting]
     Indication: FEBRILE NEUTROPENIA
     Dosage: 1.6 G, UNKNOWN/D
     Route: 042
     Dates: start: 20110119, end: 20110121
  7. ALFACALCIDOL [Concomitant]
     Dosage: UNK
     Route: 065
  8. AMLODIPINE [Concomitant]
     Dosage: UNK
     Route: 065
  9. NEORECORMON [Concomitant]
     Dosage: UNK
     Route: 065
  10. PREDNISOLONE [Concomitant]
     Dosage: UNK
     Route: 065
  11. CALCIUM CARBONATE [Concomitant]
     Dosage: UNK
     Route: 065
  12. RANITIDINE [Concomitant]
     Dosage: UNK
     Route: 065
  13. SODIUM BICARBONATE [Concomitant]
     Dosage: UNK
     Route: 065
  14. TRIMETHOPRIM [Concomitant]
     Dosage: UNK
     Route: 065

REACTIONS (3)
  - DRUG LEVEL INCREASED [None]
  - DRUG INTERACTION [None]
  - NEPHROPATHY TOXIC [None]
